FAERS Safety Report 19167934 (Version 1)
Quarter: 2021Q2

REPORT INFORMATION
  Report Type: Spontaneous
  Country: CN (occurrence: CN)
  Receive Date: 20210422
  Receipt Date: 20210422
  Transmission Date: 20210717
  Serious: Yes (Other)
  Sender: FDA-Public Use
  Company Number: CN-ASTRAZENECA-2021A313916

PATIENT
  Age: 21185 Day
  Sex: Female
  Weight: 70.3 kg

DRUGS (1)
  1. NEXIUM [Suspect]
     Active Substance: ESOMEPRAZOLE MAGNESIUM
     Indication: ABDOMINAL DISCOMFORT
     Route: 042
     Dates: start: 20210402, end: 20210402

REACTIONS (4)
  - Dizziness [Recovering/Resolving]
  - Discomfort [Recovering/Resolving]
  - Flushing [Recovering/Resolving]
  - Hypersensitivity [Recovered/Resolved]

NARRATIVE: CASE EVENT DATE: 20210402
